FAERS Safety Report 7320438-2 (Version None)
Quarter: 2011Q1

REPORT INFORMATION
  Report Type: 
  Country: None (occurrence: None)
  Receive Date: 20110228
  Receipt Date: 20110218
  Transmission Date: 20110831
  Serious: Yes (Other)
  Sender: FDA-Public Use
  Company Number: A0915374A

PATIENT
  Age: 61 Year
  Sex: Female

DRUGS (2)
  1. PROMACTA [Suspect]
     Dosage: 50MG PER DAY
     Dates: end: 20101021
  2. ROMIPLOSTIM [Concomitant]

REACTIONS (2)
  - LUNG NEOPLASM [None]
  - INFECTION [None]
